FAERS Safety Report 9682280 (Version 2)
Quarter: 2014Q1

REPORT INFORMATION
  Report Type: Spontaneous
  Country: US (occurrence: US)
  Receive Date: 20131112
  Receipt Date: 20140115
  Transmission Date: 20141002
  Serious: No
  Sender: FDA-Public Use
  Company Number: US-009507513-1311USA003339

PATIENT
  Age: 56 Year
  Sex: Female
  Weight: 56.69 kg

DRUGS (9)
  1. PEGINTRON [Suspect]
     Dosage: 80 MICROGRAM/0.5ML, QW,REDIPEN
     Route: 058
  2. REBETOL [Suspect]
     Route: 048
  3. ESTROVEN (OLD FORMULA) [Concomitant]
     Route: 048
  4. OMEGA-3 MARINE TRIGLYCERIDES [Concomitant]
     Route: 048
  5. BIOTIN [Concomitant]
     Route: 048
  6. MAGNESIUM (UNSPECIFIED) [Concomitant]
     Route: 048
  7. ASCORBIC ACID [Concomitant]
     Route: 048
  8. THIAMINE [Concomitant]
     Route: 048
  9. VITAMINS (UNSPECIFIED) [Concomitant]

REACTIONS (5)
  - Pain [Unknown]
  - Injection site bruising [Unknown]
  - Nausea [Unknown]
  - Injection site erythema [Unknown]
  - Vomiting [Unknown]
